FAERS Safety Report 18276308 (Version 2)
Quarter: 2020Q4

REPORT INFORMATION
  Report Type: Report from Study
  Country: US (occurrence: US)
  Receive Date: 20200917
  Receipt Date: 20201002
  Transmission Date: 20210113
  Serious: Yes (Congenital Anomaly)
  Sender: FDA-Public Use
  Company Number: US-VIIV HEALTHCARE LIMITED-US2020GSK184898

PATIENT
  Sex: Male
  Weight: 3.41 kg

DRUGS (1)
  1. DOLUTEGRAVIR [Suspect]
     Active Substance: DOLUTEGRAVIR
     Indication: HIV INFECTION
     Dosage: 1 DF
     Route: 048
     Dates: start: 20140521

REACTIONS (1)
  - Polydactyly [Unknown]

NARRATIVE: CASE EVENT DATE: 20150723
